FAERS Safety Report 12099882 (Version 4)
Quarter: 2016Q3

REPORT INFORMATION
  Report Type: Spontaneous
  Country: CA (occurrence: CA)
  Receive Date: 20160222
  Receipt Date: 20160719
  Transmission Date: 20161109
  Serious: Yes (Life-Threatening, Hospitalization, Other)
  Sender: FDA-Public Use
  Company Number: CA-PFIZER INC-2016103273

PATIENT
  Age: 7 Month
  Sex: Male

DRUGS (1)
  1. ADVIL PEDIATRIC DROPS [Suspect]
     Active Substance: IBUPROFEN
     Indication: TEETHING
     Dosage: UNK
     Route: 048

REACTIONS (9)
  - Febrile convulsion [Recovered/Resolved]
  - Product quality issue [Recovered/Resolved]
  - Body temperature increased [Recovered/Resolved]
  - Drug hypersensitivity [Recovered/Resolved]
  - Cyanosis [Recovered/Resolved]
  - Lethargy [Recovered/Resolved]
  - Erythema [Recovered/Resolved]
  - Product use issue [Unknown]
  - Poor quality drug administered [Unknown]

NARRATIVE: CASE EVENT DATE: 20160207
